FAERS Safety Report 23661853 (Version 1)
Quarter: 2024Q1

REPORT INFORMATION
  Report Type: Report from Study
  Country: US (occurrence: US)
  Receive Date: 20240322
  Receipt Date: 20240322
  Transmission Date: 20240410
  Serious: Yes (Other)
  Sender: FDA-Public Use
  Company Number: US-ABBVIE-5685551

PATIENT
  Sex: Female

DRUGS (1)
  1. VENCLEXTA [Suspect]
     Active Substance: VENETOCLAX
     Indication: Chronic lymphocytic leukaemia
     Dosage: FORM STRENGTH UNITS: 100 MILLIGRAM?TAKE 4 TABLETS BY MOUTH EVERY DAY
     Route: 048

REACTIONS (2)
  - Shoulder fracture [Unknown]
  - Multiple allergies [Unknown]
